FAERS Safety Report 4393984-1 (Version None)
Quarter: 2004Q3

REPORT INFORMATION
  Report Type: 
  Country: None (occurrence: None)
  Receive Date: 20040702
  Receipt Date: 20040622
  Transmission Date: 20050211
  Serious: Yes (Hospitalization)
  Sender: FDA-Public Use
  Company Number: 200417752BWH

PATIENT
  Age: 53 Year
  Sex: Female
  Weight: 68.0396 kg

DRUGS (5)
  1. AVELOX [Suspect]
     Indication: SINUSITIS
     Dosage: 400 MG , QD, ORAL
     Route: 048
     Dates: start: 20040310
  2. FLONASE [Concomitant]
  3. CLARITIN [Concomitant]
  4. MECLIZINE [Concomitant]
  5. COMBIVENT [Concomitant]

REACTIONS (10)
  - AGITATION [None]
  - ANXIETY [None]
  - BLOOD GLUCOSE DECREASED [None]
  - CONVERSION DISORDER [None]
  - DIZZINESS [None]
  - HYPERHIDROSIS [None]
  - MEDICAL DEVICE COMPLICATION [None]
  - NIGHT SWEATS [None]
  - NON-CARDIAC CHEST PAIN [None]
  - PANIC ATTACK [None]
